FAERS Safety Report 23334315 (Version 1)
Quarter: 2023Q4

REPORT INFORMATION
  Report Type: Spontaneous
  Country: JP (occurrence: JP)
  Receive Date: 20231223
  Receipt Date: 20231223
  Transmission Date: 20240109
  Serious: Yes (Other)
  Sender: FDA-Public Use
  Company Number: JP-GENMAB-2023-02407

PATIENT
  Age: 79 Year
  Sex: Male

DRUGS (3)
  1. EPKINLY [Suspect]
     Active Substance: EPCORITAMAB-BYSP
     Indication: Diffuse large B-cell lymphoma
     Dosage: UNK, CYCLE1
     Dates: start: 20231127
  2. EPKINLY [Suspect]
     Active Substance: EPCORITAMAB-BYSP
     Dosage: UNK,  CYCLE 1-2
     Dates: start: 20231204
  3. EPKINLY [Suspect]
     Active Substance: EPCORITAMAB-BYSP
     Dosage: UNK, CYCLE 1-3
     Dates: start: 20231211

REACTIONS (2)
  - Ascites [None]
  - Neutropenia [Unknown]
